FAERS Safety Report 6316917-7 (Version None)
Quarter: 2009Q3

REPORT INFORMATION
  Report Type: 
  Country: None (occurrence: None)
  Receive Date: 20090820
  Receipt Date: 20090810
  Transmission Date: 20100115
  Serious: Yes (Other)
  Sender: FDA-Public Use
  Company Number: DE-PFIZER INC-2009252152

PATIENT

DRUGS (2)
  1. MINOXIDIL [Suspect]
     Indication: ESSENTIAL HYPERTENSION
     Dosage: UNK
     Route: 048
     Dates: start: 20010101, end: 20080801
  2. METOHEXAL [Suspect]
     Indication: ESSENTIAL HYPERTENSION

REACTIONS (3)
  - GENERAL PHYSICAL HEALTH DETERIORATION [None]
  - OEDEMA [None]
  - WEIGHT INCREASED [None]
